FAERS Safety Report 16796718 (Version 1)
Quarter: 2019Q3

REPORT INFORMATION
  Report Type: Spontaneous
  Country: US (occurrence: US)
  Receive Date: 20190911
  Receipt Date: 20190911
  Transmission Date: 20191005
  Serious: No
  Sender: FDA-Public Use
  Company Number: US-LNK INTERNATIONAL, INC.-2074350

PATIENT
  Age: 58 Year
  Sex: Female

DRUGS (7)
  1. SENNOSIDES 8.6MG FILM COATED BROWN TABLETS [Suspect]
     Active Substance: SENNOSIDES
     Indication: CONSTIPATION
  2. OLMESARTAN [Concomitant]
     Active Substance: OLMESARTAN
  3. ZOLPIDEM [Concomitant]
     Active Substance: ZOLPIDEM TARTRATE
  4. CARVEDILOL. [Concomitant]
     Active Substance: CARVEDILOL
  5. SPIRONOLACTONE. [Concomitant]
     Active Substance: SPIRONOLACTONE
  6. ROSUVASTATIN. [Concomitant]
     Active Substance: ROSUVASTATIN
  7. LASIX [Concomitant]
     Active Substance: FUROSEMIDE

REACTIONS (3)
  - Rash [None]
  - Pruritus [None]
  - Swelling of eyelid [None]
